FAERS Safety Report 7794040 (Version 2)
Quarter: 2013Q3

REPORT INFORMATION
  Report Type: Spontaneous
  Country: US (occurrence: US)
  Receive Date: 20110201
  Receipt Date: 20130930
  Transmission Date: 20140515
  Serious: Yes (Hospitalization)
  Sender: FDA-Public Use
  Company Number: US-RANBAXY-2011US-41373

PATIENT
  Age: 79 Year
  Sex: Male

DRUGS (3)
  1. CIPROFLOXACIN [Suspect]
     Indication: DIVERTICULITIS
     Dosage: UNK, UNK
     Route: 065
  2. GLIMEPIRIDE [Interacting]
     Indication: TYPE 2 DIABETES MELLITUS
     Dosage: UNK
     Route: 048
  3. METRONIDAZOLE [Interacting]
     Indication: DIVERTICULITIS
     Dosage: UNK
     Route: 065

REACTIONS (3)
  - Hypoglycaemia [Recovering/Resolving]
  - Drug interaction [Unknown]
  - Hypotension [Unknown]
